FAERS Safety Report 15248953 (Version 1)
Quarter: 2018Q3

REPORT INFORMATION
  Report Type: Spontaneous
  Country: US (occurrence: US)
  Receive Date: 20180807
  Receipt Date: 20180807
  Transmission Date: 20181010
  Serious: No
  Sender: FDA-Public Use
  Company Number: US-PFIZER INC-2018315773

PATIENT
  Sex: Female

DRUGS (1)
  1. ADVIL [Suspect]
     Active Substance: IBUPROFEN

REACTIONS (5)
  - Agitation [Unknown]
  - Arthralgia [Unknown]
  - Nervousness [Unknown]
  - Restless legs syndrome [Unknown]
  - Insomnia [Unknown]
